FAERS Safety Report 4322714-4 (Version None)
Quarter: 2004Q1

REPORT INFORMATION
  Report Type: 
  Country: None (occurrence: None)
  Receive Date: 20040324
  Receipt Date: 20040312
  Transmission Date: 20041129
  Serious: Yes (Other)
  Sender: FDA-Public Use
  Company Number: FR-BRISTOL-MYERS SQUIBB COMPANY-12532438

PATIENT
  Age: 31 Year
  Sex: Female

DRUGS (2)
  1. AMOXICILLIN [Suspect]
     Indication: ACUTE SINUSITIS
     Dates: start: 20020601
  2. LEVOFLOXACIN [Suspect]
     Indication: ACUTE SINUSITIS
     Dates: start: 20020601

REACTIONS (1)
  - HEPATITIS [None]
